FAERS Safety Report 4273152-4 (Version None)
Quarter: 2004Q1

REPORT INFORMATION
  Report Type: 
  Country: None (occurrence: None)
  Receive Date: 20040116
  Receipt Date: 20040112
  Transmission Date: 20041129
  Serious: Yes (Death, Hospitalization)
  Sender: FDA-Public Use
  Company Number: GB-GLAXOSMITHKLINE-B0319832A

PATIENT
  Age: 51 Year
  Sex: Male

DRUGS (5)
  1. LITHIUM CARBONATE [Suspect]
     Indication: SCHIZOAFFECTIVE DISORDER
  2. RISPERIDONE [Suspect]
     Indication: SCHIZOAFFECTIVE DISORDER
     Dosage: 50MG EVERY TWO WEEKS
     Route: 030
     Dates: start: 20030515
  3. CHLORPROMAZINE [Concomitant]
     Dosage: 200MG PER DAY
  4. FERROUS SULFATE TAB [Concomitant]
  5. ACETYLSALICYLIC ACID SRT [Concomitant]
     Dosage: 75MG PER DAY

REACTIONS (3)
  - INTESTINAL INFARCTION [None]
  - SCHIZOPHRENIA [None]
  - SEPSIS [None]
